FAERS Safety Report 5584046-6 (Version None)
Quarter: 2008Q1

REPORT INFORMATION
  Report Type: 
  Country: None (occurrence: None)
  Receive Date: 20080108
  Receipt Date: 20071231
  Transmission Date: 20080703
  Serious: Yes (Hospitalization)
  Sender: FDA-Public Use
  Company Number: GB-ROCHE-524407

PATIENT
  Age: 63 Year
  Sex: Male
  Weight: 131.5 kg

DRUGS (9)
  1. ORLISTAT [Suspect]
     Indication: OBESITY
     Route: 048
     Dates: start: 20070907, end: 20071219
  2. ASPIRIN [Concomitant]
     Dosage: TAKEN FOR LONG TERM.
     Route: 048
  3. ENALAPRIL [Concomitant]
     Dosage: TAKEN FOR LONG TERM.
     Route: 048
  4. SIMVASTATIN [Concomitant]
     Dosage: TAKEN FOR LONG TERM.
     Route: 048
  5. AMLODIPINE [Concomitant]
     Dosage: TAKEN FOR LONG TERM.
     Route: 048
  6. SPIROLACTONE [Concomitant]
     Dosage: TAKEN FOR LONG TERM.
     Route: 048
  7. COMBIVENT [Concomitant]
     Indication: ASTHMA
     Dosage: TAKEN FOR LONG TERM.
     Route: 055
  8. METFORMIN HCL [Concomitant]
     Dosage: TAKEN FOR LONG TERM.
     Route: 048
     Dates: end: 20070910
  9. FRUSEMIDE [Concomitant]
     Dosage: DOSE REPORTED AS 80MG IN MORNING AND 40MG IN EVENING. OTHER INDICATION: KIDNEY PROBLEMS.
     Route: 048
     Dates: start: 20070918

REACTIONS (5)
  - ANAEMIA [None]
  - DYSPNOEA [None]
  - HEART RATE IRREGULAR [None]
  - RENAL DISORDER [None]
  - RENAL FAILURE [None]
